FAERS Safety Report 15681885 (Version 1)
Quarter: 2018Q4

REPORT INFORMATION
  Report Type: Report from Study
  Country: BR (occurrence: BR)
  Receive Date: 20181203
  Receipt Date: 20181203
  Transmission Date: 20190205
  Serious: Yes (Other)
  Sender: FDA-Public Use
  Company Number: PHHY2018BR162066

PATIENT
  Age: 81 Year
  Sex: Female
  Weight: 97 kg

DRUGS (3)
  1. EXFORGE HCT [Suspect]
     Active Substance: AMLODIPINE BESYLATE\HYDROCHLOROTHIAZIDE\VALSARTAN
     Dosage: 0.5 DF, QD ( AMLODIPINE 5 MG, HYDROCHLOROTHIAZIDE 12.5MG, VALSARTAN 160MG) (3 YEARS AGO)
     Route: 048
  2. PAROXETIN [Concomitant]
     Active Substance: PAROXETINE HYDROCHLORIDE
     Indication: DEPRESSION
     Dosage: 20 MG, QD (3 YARS AGO)
     Route: 048
  3. EXFORGE HCT [Suspect]
     Active Substance: AMLODIPINE BESYLATE\HYDROCHLOROTHIAZIDE\VALSARTAN
     Indication: HYPERTENSION
     Dosage: 1 DF, QD (AMLODIPINE 5 MG, HYDROCHLOROTHIAZIDE 12.5MG, VALSARTAN 160MG)
     Route: 065

REACTIONS (10)
  - Musculoskeletal stiffness [Recovered/Resolved]
  - Blood pressure decreased [Recovered/Resolved]
  - Blood pressure increased [Recovered/Resolved]
  - Dyspnoea [Recovered/Resolved]
  - Wrong technique in product usage process [Not Recovered/Not Resolved]
  - Sluggishness [Recovered/Resolved]
  - Somnolence [Recovered/Resolved]
  - Heart rate increased [Recovered/Resolved]
  - Headache [Recovered/Resolved]
  - Dizziness [Recovered/Resolved]

NARRATIVE: CASE EVENT DATE: 2018
